FAERS Safety Report 23396627 (Version 1)
Quarter: 2024Q1

REPORT INFORMATION
  Report Type: Spontaneous
  Country: FR (occurrence: FR)
  Receive Date: 20240112
  Receipt Date: 20240112
  Transmission Date: 20240410
  Serious: Yes (Other)
  Sender: FDA-Public Use
  Company Number: None

PATIENT
  Age: 16 Year
  Sex: Female
  Weight: 40.4 kg

DRUGS (2)
  1. LANSOPRAZOLE [Suspect]
     Active Substance: LANSOPRAZOLE
     Indication: Gastritis
     Dosage: 15 MILLIGRAM, QD
     Route: 048
     Dates: start: 20230116, end: 20230526
  2. VORICONAZOLE [Suspect]
     Active Substance: VORICONAZOLE
     Indication: Pulmonary mass
     Dosage: 200 MILLIGRAM, BID
     Route: 048
     Dates: start: 20230101, end: 20230526

REACTIONS (1)
  - Hepatic cytolysis [Recovered/Resolved]

NARRATIVE: CASE EVENT DATE: 20230420
